FAERS Safety Report 17550554 (Version 1)
Quarter: 2020Q1

REPORT INFORMATION
  Report Type: Spontaneous
  Country: US (occurrence: US)
  Receive Date: 20200317
  Receipt Date: 20200317
  Transmission Date: 20200409
  Serious: Yes (Death)
  Sender: FDA-Public Use
  Company Number: NVSC2020US072851

PATIENT
  Sex: Male

DRUGS (1)
  1. TAFINLAR [Suspect]
     Active Substance: DABRAFENIB MESYLATE
     Indication: NON-SMALL CELL LUNG CANCER METASTATIC
     Dosage: 150 MG, BID
     Route: 048

REACTIONS (2)
  - Non-small cell lung cancer stage IV [Fatal]
  - Ejection fraction decreased [Fatal]
